FAERS Safety Report 7814101-9 (Version None)
Quarter: 2011Q4

REPORT INFORMATION
  Report Type: 
  Country: None (occurrence: None)
  Receive Date: 20111014
  Receipt Date: 20111007
  Transmission Date: 20120403
  Serious: Yes (Hospitalization, Other)
  Sender: FDA-Public Use
  Company Number: US-JNJFOC-20110805006

PATIENT
  Sex: Male

DRUGS (7)
  1. LEVAQUIN [Suspect]
     Indication: PROSTATE INFECTION
     Route: 048
     Dates: start: 20071101, end: 20071201
  2. METHYLPREDNISOLONE [Suspect]
     Indication: PRODUCT USED FOR UNKNOWN INDICATION
     Route: 048
  3. CIPROFLOXACIN [Suspect]
     Indication: PAIN MANAGEMENT
     Route: 048
  4. FLUTICASONE PROPIONATE [Suspect]
     Indication: PRODUCT USED FOR UNKNOWN INDICATION
     Route: 055
  5. PREDNISONE [Suspect]
     Indication: PAIN MANAGEMENT
     Route: 048
  6. COZAAR [Concomitant]
     Indication: PRODUCT USED FOR UNKNOWN INDICATION
     Route: 065
  7. AVODART [Concomitant]
     Indication: PRODUCT USED FOR UNKNOWN INDICATION
     Route: 065

REACTIONS (3)
  - JOINT INJURY [None]
  - ROTATOR CUFF SYNDROME [None]
  - TENDONITIS [None]
